FAERS Safety Report 6755574 (Version 8)
Quarter: 2014Q2

REPORT INFORMATION
  Report Type: Spontaneous
  Country: US (occurrence: US)
  Receive Date: 20080912
  Receipt Date: 20140617
  Transmission Date: 20141212
  Serious: Yes (Other)
  Sender: FDA-Public Use
  Company Number: US-PFIZER INC-2008074667

PATIENT
  Age: 60 Year
  Sex: Male
  Weight: 96 kg

DRUGS (13)
  1. LIPITOR [Suspect]
     Indication: BLOOD CHOLESTEROL INCREASED
     Dosage: 40 MG, 1X/DAY
  2. CADUET [Suspect]
     Dosage: 5/20 UNK, 1X/DAY
  3. XANAX [Suspect]
     Dosage: 0.25 MG, AS NEEDED
  4. NITROSTAT [Suspect]
     Dosage: UNK
  5. PROTONIX [Suspect]
     Dosage: 40 MG, 1X/DAY
  6. ALDACTONE [Suspect]
     Indication: DIURETIC THERAPY
     Dosage: 25 MG, 1X/DAY
  7. NORVASC [Suspect]
     Dosage: UNK
  8. ATENOLOL [Concomitant]
     Indication: HYPERTENSION
     Dosage: 50 MG, 1X/DAY
  9. AVAPRO [Concomitant]
     Dosage: 300 MG, 1X/DAY
  10. METFORMIN [Concomitant]
     Indication: DIABETES MELLITUS
     Dosage: 500 UNK, 3X/DAY
  11. AMARYL [Concomitant]
     Dosage: 2 MG, 1X/DAY
  12. ASPIRIN [Concomitant]
     Dosage: 81 MG, 1X/DAY
  13. COUMADIN [Concomitant]
     Dosage: 5 MG, AS DIVIDED

REACTIONS (15)
  - Coronary artery bypass [Not Recovered/Not Resolved]
  - Coronary artery occlusion [Unknown]
  - Chest discomfort [Unknown]
  - Postoperative thoracic procedure complication [Unknown]
  - Diabetes mellitus [Unknown]
  - Obesity [Unknown]
  - Fatigue [Unknown]
  - Stress [Unknown]
  - Limb discomfort [Unknown]
  - Somnolence [Unknown]
  - Abdominal distension [Unknown]
  - Chest discomfort [Unknown]
  - Gastrointestinal pain [Unknown]
  - Chest pain [Unknown]
  - Anxiety [Unknown]
